FAERS Safety Report 24748619 (Version 1)
Quarter: 2024Q4

REPORT INFORMATION
  Report Type: Spontaneous
  Country: US (occurrence: US)
  Receive Date: 20241218
  Receipt Date: 20241218
  Transmission Date: 20250115
  Serious: Yes (Other)
  Sender: Hindustan Unilever
  Company Number: US-Hindustan Unilever Limited-2167351

PATIENT
  Age: 36 Year
  Sex: Female

DRUGS (1)
  1. COSMETICS [Suspect]
     Active Substance: COSMETICS
     Dates: start: 20241123

REACTIONS (2)
  - Pruritus [Recovered/Resolved]
  - Fungal infection [Recovered/Resolved]

NARRATIVE: CASE EVENT DATE: 20241123
